FAERS Safety Report 9196825 (Version 2)
Quarter: 2013Q4

REPORT INFORMATION
  Report Type: Spontaneous
  Country: US (occurrence: US)
  Receive Date: 20130328
  Receipt Date: 20131127
  Transmission Date: 20140711
  Serious: Yes (Other)
  Sender: FDA-Public Use
  Company Number: US-BAYER-2013-038426

PATIENT
  Age: 20 Year
  Sex: Female

DRUGS (4)
  1. YAZ [Suspect]
     Dosage: UNK
     Dates: start: 20080520, end: 20081003
  2. YASMIN [Suspect]
     Dosage: UNK
     Dates: start: 20081003, end: 20090529
  3. OCELLA [Suspect]
     Dosage: UNK
  4. IBUPROFEN [Concomitant]

REACTIONS (5)
  - Gallbladder injury [None]
  - Injury [None]
  - Pain [None]
  - Pain [None]
  - Cholecystitis chronic [None]
